FAERS Safety Report 8338742-8 (Version None)
Quarter: 2012Q2

REPORT INFORMATION
  Report Type: 
  Country: None (occurrence: None)
  Receive Date: 20120504
  Receipt Date: 20120503
  Transmission Date: 20120825
  Serious: Yes (Death, Other)
  Sender: FDA-Public Use
  Company Number: US-ABBOTT-12P-163-0908671-00

PATIENT
  Sex: Female

DRUGS (4)
  1. CELLSEPT [Concomitant]
     Indication: PRODUCT USED FOR UNKNOWN INDICATION
  2. HUMIRA [Suspect]
     Indication: RHEUMATOID ARTHRITIS
     Route: 050
     Dates: start: 20060201, end: 20110101
  3. OXYGEN [Concomitant]
     Indication: PULMONARY FIBROSIS
     Dosage: 24HR/DAY
  4. METHOTREXATE [Concomitant]
     Indication: RHEUMATOID ARTHRITIS
     Dates: end: 20110101

REACTIONS (7)
  - HAEMOPTYSIS [None]
  - INTERSTITIAL LUNG DISEASE [None]
  - DYSPNOEA [None]
  - RESPIRATORY TRACT INFECTION [None]
  - RHEUMATOID ARTHRITIS [None]
  - PULMONARY FIBROSIS [None]
  - COUGH [None]
